FAERS Safety Report 13251614 (Version 3)
Quarter: 2017Q1

REPORT INFORMATION
  Report Type: Report from Study
  Country: GB (occurrence: GB)
  Receive Date: 20170220
  Receipt Date: 20170224
  Transmission Date: 20170428
  Serious: Yes (Hospitalization)
  Sender: FDA-Public Use
  Company Number: GB-IPSEN BIOPHARMACEUTICALS, INC.-2017-01280

PATIENT
  Sex: Female

DRUGS (1)
  1. SOMATULINE LA [Suspect]
     Active Substance: LANREOTIDE ACETATE
     Indication: NEUROENDOCRINE TUMOUR
     Dosage: NOT REPORTED
     Route: 065

REACTIONS (5)
  - Heart rate irregular [Unknown]
  - Seizure [Unknown]
  - Urticaria [Unknown]
  - Eye swelling [Unknown]
  - Pericardial disease [Unknown]

NARRATIVE: CASE EVENT DATE: 2017
